FAERS Safety Report 23140583 (Version 1)
Quarter: 2023Q4

REPORT INFORMATION
  Report Type: Spontaneous
  Country: US (occurrence: US)
  Receive Date: 20231103
  Receipt Date: 20231103
  Transmission Date: 20240109
  Serious: Yes (Other)
  Sender: FDA-Public Use
  Company Number: US-MALLINCKRODT-MNK202305290

PATIENT

DRUGS (4)
  1. CORTICOTROPIN [Suspect]
     Active Substance: CORTICOTROPIN
     Indication: Product used for unknown indication
     Dosage: UNKNOWN
     Dates: start: 2014
  2. CORTICOTROPIN [Suspect]
     Active Substance: CORTICOTROPIN
     Dosage: UNKNOWN
     Dates: start: 2017
  3. CORTICOTROPIN [Suspect]
     Active Substance: CORTICOTROPIN
     Dosage: UNKNOWN
     Dates: start: 202310
  4. PAXLOVID [Suspect]
     Active Substance: NIRMATRELVIR\RITONAVIR
     Indication: Product used for unknown indication
     Dosage: UNKNOWN

REACTIONS (12)
  - COVID-19 [Not Recovered/Not Resolved]
  - Multiple sclerosis relapse [Unknown]
  - Optic neuritis [Unknown]
  - Condition aggravated [Unknown]
  - Illness [Unknown]
  - Post-acute COVID-19 syndrome [Unknown]
  - Blood cholesterol increased [Unknown]
  - Blood glucose abnormal [Unknown]
  - Body temperature decreased [Unknown]
  - Gait inability [Not Recovered/Not Resolved]
  - Balance disorder [Unknown]
  - Drug ineffective [Unknown]
